FAERS Safety Report 18135316 (Version 1)
Quarter: 2020Q3

REPORT INFORMATION
  Report Type: Spontaneous
  Country: US (occurrence: US)
  Receive Date: 20200811
  Receipt Date: 20200811
  Transmission Date: 20201103
  Serious: Yes (Other)
  Sender: FDA-Public Use
  Company Number: None

PATIENT
  Age: 53 Year
  Sex: Female
  Weight: 58.5 kg

DRUGS (8)
  1. OXICODONE [Concomitant]
  2. PREMARIN [Concomitant]
     Active Substance: ESTROGENS, CONJUGATED
  3. ALBUTEROL SULFATE 90MCG [Suspect]
     Active Substance: ALBUTEROL SULFATE
     Indication: ASTHMA
     Dosage: ?          QUANTITY:1 INHALATION(S);?
     Route: 055
     Dates: start: 20200810, end: 20200810
  4. NORETHEDRONE [Concomitant]
  5. MORPHINE [Concomitant]
     Active Substance: MORPHINE
  6. ADVIL [Concomitant]
     Active Substance: IBUPROFEN
  7. VALTREX [Concomitant]
     Active Substance: VALACYCLOVIR HYDROCHLORIDE
  8. FENTANYL. [Concomitant]
     Active Substance: FENTANYL

REACTIONS (5)
  - Product complaint [None]
  - Device delivery system issue [None]
  - Insurance issue [None]
  - Device difficult to use [None]
  - Product design issue [None]

NARRATIVE: CASE EVENT DATE: 20200810
